FAERS Safety Report 20185555 (Version 1)
Quarter: 2021Q4

REPORT INFORMATION
  Report Type: Spontaneous
  Country: US (occurrence: US)
  Receive Date: 20211215
  Receipt Date: 20211215
  Transmission Date: 20220303
  Serious: No
  Sender: FDA-Public Use
  Company Number: US-SPECGX-T202101119

PATIENT
  Sex: Male
  Weight: 77 kg

DRUGS (2)
  1. FENTANYL TRANSDERMAL SYSTEM [Suspect]
     Active Substance: FENTANYL
     Indication: Pain
     Dosage: 100 MCG/HR, EVERY 24 HOURS
     Route: 062
  2. FENTANYL TRANSDERMAL SYSTEM [Suspect]
     Active Substance: FENTANYL
     Dosage: 100 MCG/HR, EVERY 24 HOURS
     Route: 062

REACTIONS (5)
  - Weight fluctuation [Unknown]
  - Sensitivity to weather change [Unknown]
  - Bedridden [Unknown]
  - Product adhesion issue [Unknown]
  - Therapeutic product effect incomplete [Unknown]
